FAERS Safety Report 10680861 (Version 3)
Quarter: 2015Q1

REPORT INFORMATION
  Report Type: Report from Study
  Country: JP (occurrence: JP)
  Receive Date: 20141229
  Receipt Date: 20150220
  Transmission Date: 20150720
  Serious: Yes (Death, Life-Threatening, Hospitalization)
  Sender: FDA-Public Use
  Company Number: JP-B.I. PHARMACEUTICALS,INC./RIDGEFIELD-2014-BI-34879NB

PATIENT
  Age: 80 Year
  Sex: Female
  Weight: 53 kg

DRUGS (2)
  1. GILOTRIF [Suspect]
     Active Substance: AFATINIB
     Indication: LUNG ADENOCARCINOMA
     Dosage: 40 MG
     Route: 048
     Dates: start: 20140610, end: 20140724
  2. GILOTRIF [Suspect]
     Active Substance: AFATINIB
     Dosage: 30 MG
     Route: 048
     Dates: start: 20140731, end: 20140929

REACTIONS (6)
  - Stomatitis [Unknown]
  - Cerebral infarction [Unknown]
  - Rash [Unknown]
  - Disseminated intravascular coagulation [Fatal]
  - Interstitial lung disease [Fatal]
  - Diarrhoea [Unknown]

NARRATIVE: CASE EVENT DATE: 20140614
